FAERS Safety Report 5509967-1 (Version None)
Quarter: 2007Q4

REPORT INFORMATION
  Report Type: 
  Country: None (occurrence: None)
  Receive Date: 20071106
  Receipt Date: 20071018
  Transmission Date: 20080405
  Serious: Yes (Hospitalization)
  Sender: FDA-Public Use
  Company Number: S07-FRA-05678-01

PATIENT
  Age: 62 Year
  Sex: Male

DRUGS (4)
  1. SEROPRAM ORAL SOLUTION (CITALOPRAM) [Suspect]
     Dates: start: 20070505, end: 20070913
  2. TRAZODONE HCL [Suspect]
     Dates: start: 20070601
  3. BISOPROLOL FUMARATE [Concomitant]
  4. LERCANIDIPINE [Concomitant]

REACTIONS (3)
  - DIZZINESS POSTURAL [None]
  - DRUG INTERACTION [None]
  - ORTHOSTATIC HYPOTENSION [None]
